FAERS Safety Report 10896048 (Version 1)
Quarter: 2015Q1

REPORT INFORMATION
  Report Type: Report from Study
  Country: FR (occurrence: FR)
  Receive Date: 20150308
  Receipt Date: 20150308
  Transmission Date: 20150721
  Serious: Yes (Hospitalization)
  Sender: FDA-Public Use
  Company Number: FR-MYLANLABS-2015M1006948

PATIENT

DRUGS (2)
  1. TOPIRAMATE. [Concomitant]
     Active Substance: TOPIRAMATE
     Dosage: UNK
     Route: 063
  2. LEVETIRACETAM. [Suspect]
     Active Substance: LEVETIRACETAM
     Dosage: UNK
     Route: 063

REACTIONS (4)
  - Sedation [Recovering/Resolving]
  - Weight decreased [Recovering/Resolving]
  - Vomiting [Recovering/Resolving]
  - Exposure during breast feeding [Recovering/Resolving]
